FAERS Safety Report 11335557 (Version 1)
Quarter: 2015Q3

REPORT INFORMATION
  Report Type: Spontaneous
  Country: US (occurrence: US)
  Receive Date: 20150804
  Receipt Date: 20150804
  Transmission Date: 20151125
  Serious: No
  Sender: FDA-Public Use
  Company Number: US-GLAXOSMITHKLINE-US2015075156

PATIENT
  Age: 55 Year
  Sex: Female

DRUGS (4)
  1. TUMS EX [Suspect]
     Active Substance: CALCIUM CARBONATE
     Indication: DYSPEPSIA
     Dosage: UNK
  2. ACYCLOVIR. [Suspect]
     Active Substance: ACYCLOVIR
     Indication: PRODUCT USED FOR UNKNOWN INDICATION
     Dosage: UNK
  3. TUMS EX [Suspect]
     Active Substance: CALCIUM CARBONATE
     Indication: FLATULENCE
  4. PREDNISONE. [Suspect]
     Active Substance: PREDNISONE
     Indication: PRODUCT USED FOR UNKNOWN INDICATION
     Dosage: UNK

REACTIONS (3)
  - Faeces discoloured [Not Recovered/Not Resolved]
  - Drug interaction [Unknown]
  - Drug administration error [None]

NARRATIVE: CASE EVENT DATE: 20150531
